FAERS Safety Report 12172687 (Version 1)
Quarter: 2016Q1

REPORT INFORMATION
  Report Type: Spontaneous
  Country: FR (occurrence: FR)
  Receive Date: 20160311
  Receipt Date: 20160311
  Transmission Date: 20160526
  Serious: Yes (Congenital Anomaly)
  Sender: FDA-Public Use
  Company Number: FR-ABBVIE-16P-056-1579582-00

PATIENT
  Sex: Female

DRUGS (2)
  1. VALIUM [Suspect]
     Active Substance: DIAZEPAM
     Indication: MATERNAL EXPOSURE TIMING UNSPECIFIED
     Route: 064
  2. DEPAKINE CHRONO [Suspect]
     Active Substance: VALPROATE SODIUM
     Indication: MATERNAL EXPOSURE TIMING UNSPECIFIED
     Route: 064

REACTIONS (7)
  - Foetal exposure during pregnancy [Unknown]
  - Congenital foot malformation [Unknown]
  - Intellectual disability [Unknown]
  - Developmental delay [Unknown]
  - Ear infection [Unknown]
  - Cleft palate [Unknown]
  - Congenital hand malformation [Unknown]
